FAERS Safety Report 15311148 (Version 2)
Quarter: 2018Q3

REPORT INFORMATION
  Report Type: Spontaneous
  Country: RU (occurrence: RU)
  Receive Date: 20180823
  Receipt Date: 20180831
  Transmission Date: 20181010
  Serious: Yes (Other)
  Sender: FDA-Public Use
  Company Number: RU-IMPAX LABORATORIES, INC-2018-IPXL-02720

PATIENT
  Age: 34 Year
  Sex: Male

DRUGS (1)
  1. DOXYCYCLINE HYCLATE DELAYED RELEASE [Suspect]
     Active Substance: DOXYCYCLINE HYCLATE
     Indication: LYMPHOMATOID PAPULOSIS
     Dosage: UNK
     Route: 065

REACTIONS (1)
  - Lymphomatoid papulosis [Recovering/Resolving]
